FAERS Safety Report 24317017 (Version 1)
Quarter: 2024Q3

REPORT INFORMATION
  Report Type: Spontaneous
  Country: US (occurrence: US)
  Receive Date: 20240913
  Receipt Date: 20240913
  Transmission Date: 20241016
  Serious: No
  Sender: SANOFI AVENTIS
  Company Number: US-SANOFI-02208551

PATIENT
  Age: 60 Year
  Sex: Male

DRUGS (3)
  1. DUPIXENT [Suspect]
     Active Substance: DUPILUMAB
     Indication: Blister
     Dosage: 200 MG
  2. DUPIXENT [Suspect]
     Active Substance: DUPILUMAB
     Indication: Pruritus
     Dosage: 300MG EVERY TWO WEEKS
  3. DUPIXENT [Suspect]
     Active Substance: DUPILUMAB
     Indication: Burning sensation

REACTIONS (2)
  - Illness [Not Recovered/Not Resolved]
  - Product use in unapproved indication [Unknown]
